FAERS Safety Report 4854166-X (Version None)
Quarter: 2005Q4

REPORT INFORMATION
  Report Type: 
  Country: None (occurrence: None)
  Receive Date: 20051213
  Receipt Date: 20051128
  Transmission Date: 20060501
  Serious: Yes (Hospitalization)
  Sender: FDA-Public Use
  Company Number: PAR_0425_2005

PATIENT
  Age: 82 Year
  Sex: Female

DRUGS (4)
  1. CITALOPRAM HYDROBROMIDE [Suspect]
     Dosage: 1.6 G ONCE PO
     Route: 048
  2. CITALOPRAM HYDROBROMIDE [Suspect]
     Dosage: 20 MG QDAY PO
     Route: 048
  3. LANSOPRAZOLE [Suspect]
     Dosage: 15 MG QDAY
  4. ATORVASTATIN [Suspect]
     Dosage: 10 MG QDAY

REACTIONS (9)
  - BLOOD PH DECREASED [None]
  - BLOOD PRESSURE SYSTOLIC INCREASED [None]
  - BODY TEMPERATURE DECREASED [None]
  - BUNDLE BRANCH BLOCK LEFT [None]
  - DRUG LEVEL ABOVE THERAPEUTIC [None]
  - ELECTROCARDIOGRAM QT CORRECTED INTERVAL PROLONGED [None]
  - GRAND MAL CONVULSION [None]
  - NODAL ARRHYTHMIA [None]
  - SINUS BRADYCARDIA [None]
